FAERS Safety Report 7752229-2 (Version None)
Quarter: 2011Q3

REPORT INFORMATION
  Report Type: 
  Country: None (occurrence: None)
  Receive Date: 20110913
  Receipt Date: 20110831
  Transmission Date: 20111222
  Serious: Yes (Other)
  Sender: FDA-Public Use
  Company Number: 2011SP013224

PATIENT
  Age: 58 Year
  Sex: Male
  Weight: 62 kg

DRUGS (2)
  1. RIBAVIRIN [Suspect]
     Indication: HEPATITIS C
     Dosage: PO
     Route: 048
     Dates: start: 20100827, end: 20110729
  2. PEG-INTRON [Suspect]
     Indication: HEPATITIS C
     Dosage: SC
     Route: 058
     Dates: start: 20100827, end: 20110729

REACTIONS (11)
  - ASCITES [None]
  - HEADACHE [None]
  - MUSCLE SPASMS [None]
  - DYSPNOEA [None]
  - MALAISE [None]
  - DECREASED APPETITE [None]
  - WEIGHT DECREASED [None]
  - HEPATIC FIBROSIS [None]
  - DIZZINESS [None]
  - ASTHENIA [None]
  - INSOMNIA [None]
